FAERS Safety Report 12505699 (Version 3)
Quarter: 2016Q3

REPORT INFORMATION
  Report Type: Spontaneous
  Country: GB (occurrence: GB)
  Receive Date: 20160628
  Receipt Date: 20160907
  Transmission Date: 20161109
  Serious: Yes (Life-Threatening, Hospitalization, Other)
  Sender: FDA-Public Use
  Company Number: GB-TEVA-669344ACC

PATIENT
  Age: 67 Year
  Sex: Female
  Weight: 80 kg

DRUGS (11)
  1. CIPROFLOXACIN. [Suspect]
     Active Substance: CIPROFLOXACIN
     Indication: ANTIBIOTIC THERAPY
  2. LETROZOLE. [Concomitant]
     Active Substance: LETROZOLE
  3. ZOMORPH [Concomitant]
     Active Substance: MORPHINE SULFATE
  4. OMEPRAZOLE. [Concomitant]
     Active Substance: OMEPRAZOLE
  5. CLEXANE [Suspect]
     Active Substance: ENOXAPARIN SODIUM
     Indication: PERIPHERAL EMBOLISM
     Route: 058
     Dates: start: 20160317, end: 20160417
  6. DOCETAXEL. [Concomitant]
     Active Substance: DOCETAXEL
     Indication: BREAST CANCER STAGE IV
     Dates: end: 20160210
  7. PERJETA [Concomitant]
     Active Substance: PERTUZUMAB
  8. HERCEPTIN [Concomitant]
     Active Substance: TRASTUZUMAB
     Indication: BREAST CANCER STAGE IV
     Dosage: ONGOING
  9. ADCAL-D3 [Concomitant]
     Active Substance: CALCIUM CARBONATE\CHOLECALCIFEROL
     Dates: start: 20151016
  10. PERTUZUMAB [Concomitant]
     Active Substance: PERTUZUMAB
     Indication: BREAST CANCER STAGE IV
     Dosage: ONGOING
  11. DENOSUMAB [Concomitant]
     Active Substance: DENOSUMAB
     Indication: BONE DISORDER

REACTIONS (11)
  - Burning sensation [Recovering/Resolving]
  - Scab [Recovering/Resolving]
  - Protein deficiency [Unknown]
  - Blister [Recovering/Resolving]
  - Erythema multiforme [Recovering/Resolving]
  - Dermatitis [Recovering/Resolving]
  - Skin haemorrhage [Recovering/Resolving]
  - Pain [Not Recovered/Not Resolved]
  - Rash erythematous [Recovering/Resolving]
  - Skin erosion [Recovering/Resolving]
  - Tachycardia [Unknown]

NARRATIVE: CASE EVENT DATE: 20160406
